FAERS Safety Report 6613446-8 (Version None)
Quarter: 2010Q1

REPORT INFORMATION
  Report Type: 
  Country: None (occurrence: None)
  Receive Date: 20100224
  Receipt Date: 20090909
  Transmission Date: 20100710
  Serious: Yes (Other)
  Sender: FDA-Public Use
  Company Number: WAES 0909USA01120

PATIENT
  Age: 47 Year
  Sex: Female

DRUGS (17)
  1. ZOCOR [Suspect]
     Indication: BLOOD CHOLESTEROL INCREASED
     Dosage: 10 MG/DAILY/PO
     Route: 048
     Dates: start: 20090201, end: 20090314
  2. ACTONEL [Concomitant]
  3. ADVAIR DISKUS 100/50 [Concomitant]
  4. AMBIEN [Concomitant]
  5. CELEXA [Concomitant]
  6. KEPPRA [Concomitant]
  7. KLONOPIN [Concomitant]
  8. PROVENTIL [Concomitant]
  9. ZOFRAN [Concomitant]
  10. ACYCLOVIR [Concomitant]
  11. DOCUSATE SODIUM [Concomitant]
  12. LEVOTHYROXINE SODIUM [Concomitant]
  13. METOCLOPRAMIDE [Concomitant]
  14. OMEGA-3 MARINE TRIGLYCERIDES [Concomitant]
  15. POTASSIUM CHLORIDE [Concomitant]
  16. TRIAMCINOLONE [Concomitant]
  17. VITAMIN D [Concomitant]

REACTIONS (2)
  - ABDOMINAL PAIN [None]
  - PANCREATITIS [None]
